FAERS Safety Report 24780276 (Version 1)
Quarter: 2024Q4

REPORT INFORMATION
  Report Type: Spontaneous
  Country: CN (occurrence: CN)
  Receive Date: 20241227
  Receipt Date: 20241227
  Transmission Date: 20250115
  Serious: Yes (Other)
  Sender: BEIGENE
  Company Number: CN-BEIGENE-BGN-2024-020773

PATIENT

DRUGS (2)
  1. TISLELIZUMAB [Suspect]
     Active Substance: TISLELIZUMAB
     Indication: Nodular lymphocyte predominant Hodgkin lymphoma
     Dosage: 200 MILLIGRAM
     Route: 041
     Dates: start: 20241205, end: 20241205
  2. SODIUM CHLORIDE [Concomitant]
     Active Substance: SODIUM CHLORIDE
     Indication: Nodular lymphocyte predominant Hodgkin lymphoma
     Dosage: 100 MILLILITER
     Route: 041
     Dates: start: 20241205, end: 20241205

REACTIONS (3)
  - Rash [Unknown]
  - Pigmentation disorder [Unknown]
  - Skin exfoliation [Unknown]

NARRATIVE: CASE EVENT DATE: 20241217
